FAERS Safety Report 6512933-0 (Version None)
Quarter: 2009Q4

REPORT INFORMATION
  Report Type: 
  Country: None (occurrence: None)
  Receive Date: 20091222
  Receipt Date: 20091222
  Transmission Date: 20100525
  Serious: Yes (Other)
  Sender: FDA-Public Use
  Company Number: None

PATIENT
  Sex: Female
  Weight: 65.7716 kg

DRUGS (1)
  1. ESTRADIOL 1 MG TAB TEVA [Suspect]
     Indication: MENOPAUSAL SYMPTOMS
     Dosage: 1 MG DAILY PO
     Route: 048
     Dates: start: 20091015, end: 20091122

REACTIONS (3)
  - DRUG INEFFECTIVE [None]
  - PRODUCT SUBSTITUTION ISSUE [None]
  - VULVOVAGINAL DRYNESS [None]
